FAERS Safety Report 8614678-X (Version None)
Quarter: 2012Q3

REPORT INFORMATION
  Report Type: 
  Country: None (occurrence: None)
  Receive Date: 20120810
  Receipt Date: 20120730
  Transmission Date: 20120928
  Serious: Yes (Other)
  Sender: FDA-Public Use
  Company Number: 2012SA054973

PATIENT
  Age: 44 Year
  Sex: Male

DRUGS (1)
  1. ICY HOT NO MESS/UNKNOWN/UNKNOWN [Suspect]
     Dates: start: 20120101

REACTIONS (3)
  - APPLICATION SITE PAIN [None]
  - APPLICATION SITE VESICLES [None]
  - SKIN EXFOLIATION [None]
